FAERS Safety Report 9355533 (Version 1)
Quarter: 2013Q2

REPORT INFORMATION
  Report Type: Spontaneous
  Country: US (occurrence: US)
  Receive Date: 20130619
  Receipt Date: 20130619
  Transmission Date: 20140414
  Serious: No
  Sender: FDA-Public Use
  Company Number: US-ASTRAZENECA-2013SE41472

PATIENT
  Sex: Male

DRUGS (4)
  1. SEROQUEL XR [Suspect]
     Dosage: AROUND 400 MG DAILY
     Route: 048
  2. DIAZAPAM [Concomitant]
  3. COGENTIN [Concomitant]
  4. RISPERDONE [Concomitant]

REACTIONS (3)
  - Anxiety [Unknown]
  - Adverse event [Unknown]
  - Dysphagia [Recovered/Resolved]
